FAERS Safety Report 15365650 (Version 1)
Quarter: 2018Q3

REPORT INFORMATION
  Report Type: Spontaneous
  Country: US (occurrence: US)
  Receive Date: 20180910
  Receipt Date: 20180910
  Transmission Date: 20181010
  Serious: No
  Sender: FDA-Public Use
  Company Number: US-JNJFOC-20180807948

PATIENT
  Sex: Female

DRUGS (1)
  1. NIZORAL A?D [Suspect]
     Active Substance: KETOCONAZOLE
     Indication: DERMATITIS
     Dosage: APPLIED LIBERALLY TO THE SCALP, ONCE DAILY FOR 4 DAYS FOR CEREBRIC DERMATITIS
     Route: 065
     Dates: start: 20180802, end: 20180805

REACTIONS (1)
  - Night sweats [Not Recovered/Not Resolved]

NARRATIVE: CASE EVENT DATE: 20180802
